FAERS Safety Report 21566477 (Version 1)
Quarter: 2022Q4

REPORT INFORMATION
  Report Type: Spontaneous
  Country: US (occurrence: None)
  Receive Date: 20221107
  Receipt Date: 20221107
  Transmission Date: 20230113
  Serious: No
  Sender: FDA-Public Use
  Company Number: None

PATIENT
  Age: 28 Year
  Sex: Female
  Weight: 83.25 kg

DRUGS (2)
  1. DEXTROAMPHET SACCHARAT, AMPHET ASPARTATE, DEXTROAMPHET SULFATE AND AMP [Suspect]
     Active Substance: AMPHETAMINE ASPARTATE\AMPHETAMINE SULFATE\DEXTROAMPHETAMINE SACCHARATE\DEXTROAMPHETAMINE SULFATE
     Indication: Somnolence
     Dosage: 1 TABLET DAILY ORAL?
     Route: 048
  2. DEXTROAMPHET SACCHARAT, AMPHET ASPARTATE, DEXTROAMPHET SULFATE AND AMP [Suspect]
     Active Substance: AMPHETAMINE ASPARTATE\AMPHETAMINE SULFATE\DEXTROAMPHETAMINE SACCHARATE\DEXTROAMPHETAMINE SULFATE
     Indication: Narcolepsy

REACTIONS (15)
  - Drug ineffective [None]
  - Overdose [None]
  - Product substitution issue [None]
  - Nausea [None]
  - Abdominal discomfort [None]
  - Anxiety [None]
  - Mood altered [None]
  - Migraine [None]
  - Irritability [None]
  - Feeling abnormal [None]
  - Panic reaction [None]
  - Sleep attacks [None]
  - Product quality issue [None]
  - Product solubility abnormal [None]
  - Product physical issue [None]
